FAERS Safety Report 6619408-9 (Version None)
Quarter: 2010Q1

REPORT INFORMATION
  Report Type: 
  Country: None (occurrence: None)
  Receive Date: 20100309
  Receipt Date: 20100305
  Transmission Date: 20100710
  Serious: Yes (Other)
  Sender: FDA-Public Use
  Company Number: US-ASTRAZENECA-2007UW16112

PATIENT
  Age: 9433 Day
  Sex: Female
  Weight: 54.4 kg

DRUGS (13)
  1. SEROQUEL [Suspect]
     Indication: SCHIZOPHRENIA
     Route: 048
     Dates: start: 20050901, end: 20050901
  2. SEROQUEL [Suspect]
     Indication: DEPRESSION
     Route: 048
     Dates: start: 20050901, end: 20050901
  3. SEROQUEL [Suspect]
     Indication: PANIC ATTACK
     Route: 048
     Dates: start: 20050901, end: 20050901
  4. SEROQUEL [Suspect]
     Route: 048
  5. SEROQUEL [Suspect]
     Route: 048
  6. SEROQUEL [Suspect]
     Route: 048
  7. ZYPREXA [Concomitant]
     Indication: BIPOLAR DISORDER
     Dosage: 5-20 MG
     Dates: start: 20080101, end: 20080101
  8. ZYPREXA [Concomitant]
     Indication: DEPRESSION
     Dosage: 5-20 MG
     Dates: start: 20080101, end: 20080101
  9. ZYPREXA [Concomitant]
     Dates: start: 20070101
  10. ZYPREXA [Concomitant]
     Dates: start: 20070101
  11. ABILIFY [Concomitant]
     Dates: start: 20080101
  12. TRAZODONE HCL [Concomitant]
     Dates: start: 20050101
  13. PROZAC [Concomitant]
     Dates: start: 20090101

REACTIONS (2)
  - CARDIAC DISORDER [None]
  - TYPE 2 DIABETES MELLITUS [None]
